FAERS Safety Report 5800076-0 (Version None)
Quarter: 2008Q3

REPORT INFORMATION
  Report Type: 
  Country: None (occurrence: None)
  Receive Date: 20080703
  Receipt Date: 20080627
  Transmission Date: 20090109
  Serious: Yes (Other)
  Sender: FDA-Public Use
  Company Number: US-ROCHE-572842

PATIENT
  Sex: Female
  Weight: 51.7 kg

DRUGS (1)
  1. CAPECITABINE [Suspect]
     Indication: BREAST CANCER
     Dosage: ONE WEEK ON AND ONE WEEK OFF.
     Route: 065
     Dates: start: 20070703, end: 20080515

REACTIONS (1)
  - DISEASE PROGRESSION [None]
